FAERS Safety Report 13183602 (Version 2)
Quarter: 2017Q1

REPORT INFORMATION
  Report Type: Spontaneous
  Country: US (occurrence: US)
  Receive Date: 20170203
  Receipt Date: 20170214
  Transmission Date: 20170428
  Serious: Yes (Other)
  Sender: FDA-Public Use
  Company Number: US-HORIZON-RAV-0034-2017

PATIENT
  Age: 32 Year
  Sex: Female

DRUGS (5)
  1. L-CITRULLINE [Concomitant]
     Active Substance: CITRULLINE
     Indication: UREA CYCLE ENZYME DEFICIENCY
  2. THIAMINE. [Concomitant]
     Active Substance: THIAMINE
  3. VITAMIN D [Concomitant]
     Active Substance: CHOLECALCIFEROL
  4. RAVICTI [Suspect]
     Active Substance: GLYCEROL PHENYLBUTYRATE
     Indication: UREA CYCLE ENZYME DEFICIENCY
     Dosage: 2.5 ML TID
     Dates: start: 20170121
  5. ONDANSETRON [Concomitant]
     Active Substance: ONDANSETRON

REACTIONS (1)
  - Hyperammonaemia [Unknown]
